FAERS Safety Report 8809188 (Version 1)
Quarter: 2012Q4

REPORT INFORMATION
  Report Type: 
  Country: NO (occurrence: None)
  Receive Date: 20120920
  Receipt Date: 20120920
  Transmission Date: 20130627
  Serious: Yes (Death)
  Sender: FDA-Public Use
  Company Number: COAC20120007

PATIENT
  Age: 64 Year
  Sex: Female

DRUGS (8)
  1. CODEINE PHOSPHATE / ACETAMINOPHEN [Suspect]
     Indication: PRODUCT USED FOR UNKNOWN INDICATION
  2. DIAZEPAM [Concomitant]
  3. ZOLPIDEM TARTRATE TABLETS (ZOLPIDEM TARTRATE) (ZOLPIDEM TARTRATE) [Concomitant]
  4. NITRAZEPAM (NITRAZEPAM) (NITRAZEPAM) [Concomitant]
  5. CITALOPRAM (CITALOPRAM) (CITALOPRAM) [Concomitant]
  6. MIANSERIN (MIANSERIN) (MIANSERIN) [Concomitant]
  7. AMITRIPTYLINE HCL (AMITRIPTYLINE HYDROCHLORIDE) (AMITRIPTYLINE HYDROCHLORIDE) [Concomitant]
  8. NORTRIPTYLINE (NORTRIPTYLINE) (NORTRIPTYLINE) [Concomitant]

REACTIONS (6)
  - Hepatic steatosis [None]
  - Hepatic fibrosis [None]
  - Hepatitis [None]
  - Arteriosclerosis coronary artery [None]
  - Myocardial ischaemia [None]
  - Toxicity to various agents [None]
